FAERS Safety Report 7998200-7 (Version None)
Quarter: 2011Q4

REPORT INFORMATION
  Report Type: 
  Country: None (occurrence: None)
  Receive Date: 20111221
  Receipt Date: 20110406
  Transmission Date: 20120403
  Serious: No
  Sender: FDA-Public Use
  Company Number: US-GLAXOSMITHKLINE-A0921649A

PATIENT
  Age: 45 Year
  Sex: Male

DRUGS (3)
  1. COFFEE [Suspect]
     Indication: PRODUCT USED FOR UNKNOWN INDICATION
     Route: 048
  2. NEXIUM [Suspect]
     Indication: PRODUCT USED FOR UNKNOWN INDICATION
     Route: 065
  3. LOVAZA [Suspect]
     Indication: BLOOD TRIGLYCERIDES INCREASED
     Dosage: 1CAP PER DAY
     Route: 048
     Dates: start: 20100501

REACTIONS (9)
  - MYALGIA [None]
  - EPIGASTRIC DISCOMFORT [None]
  - CHEST PAIN [None]
  - BACK PAIN [None]
  - VISION BLURRED [None]
  - HEART RATE IRREGULAR [None]
  - ERUCTATION [None]
  - DYSGEUSIA [None]
  - HAEMOPTYSIS [None]
